FAERS Safety Report 8369290-7 (Version None)
Quarter: 2012Q2

REPORT INFORMATION
  Report Type: 
  Country: None (occurrence: None)
  Receive Date: 20120518
  Receipt Date: 20120511
  Transmission Date: 20120825
  Serious: Yes (Other)
  Sender: FDA-Public Use
  Company Number: DE-UCBSA-053004

PATIENT

DRUGS (1)
  1. VIMPAT [Suspect]
     Indication: EPILEPSY
     Dosage: 50 TO 500MG FOLLOWING ORAL OR INTRAVENOUS TITRATION

REACTIONS (1)
  - PANCYTOPENIA [None]
